FAERS Safety Report 7396405-X (Version None)
Quarter: 2011Q1

REPORT INFORMATION
  Report Type: 
  Country: None (occurrence: None)
  Receive Date: 20110325
  Receipt Date: 20110315
  Transmission Date: 20110831
  Serious: No
  Sender: FDA-Public Use
  Company Number: B0707880A

PATIENT
  Age: 47 Year
  Sex: Male

DRUGS (4)
  1. PAROXETINE HYDROCHLORIDE [Suspect]
     Indication: DEPRESSION
  2. INTERFERON ALFA-2B (FORMULATION UNKNOWN) (INTERFERON ALFA-2B) [Suspect]
     Indication: HEPATITIS B
  3. BUPROPION HCL [Suspect]
     Indication: DEPRESSION
     Dosage: 100 MG / TWICE PER DAY /
  4. RIBAVIRIN [Suspect]
     Indication: HEPATITIS B

REACTIONS (1)
  - CONVULSION [None]
